FAERS Safety Report 24297961 (Version 1)
Quarter: 2024Q3

REPORT INFORMATION
  Report Type: Spontaneous
  Country: BR (occurrence: BR)
  Receive Date: 20240909
  Receipt Date: 20240909
  Transmission Date: 20241017
  Serious: Yes (Other)
  Sender: ROCHE
  Company Number: BR-BoehringerIngelheim-2024-BI-048803

PATIENT
  Age: 54 Year
  Sex: Male
  Weight: 60 kg

DRUGS (1)
  1. ALTEPLASE [Suspect]
     Active Substance: ALTEPLASE
     Indication: Acute myocardial infarction
     Route: 065

REACTIONS (25)
  - Cerebral haemorrhage [Unknown]
  - Cervical vertebral fracture [Unknown]
  - Quadriplegia [Unknown]
  - Extradural haematoma [Unknown]
  - Quadriparesis [Not Recovered/Not Resolved]
  - Confusional state [Unknown]
  - Somnolence [Unknown]
  - Asthenia [Unknown]
  - Respiratory disorder [Unknown]
  - Hypertension [Recovered/Resolved]
  - Depressed level of consciousness [Unknown]
  - Endotracheal intubation [Recovered/Resolved]
  - Confusional state [Unknown]
  - Hyperhidrosis [Unknown]
  - Aortic dilatation [Unknown]
  - Pleural effusion [Unknown]
  - Spinal osteoarthritis [Unknown]
  - Pyrexia [Recovered/Resolved]
  - Klebsiella infection [Unknown]
  - Tracheostomy [Unknown]
  - Back pain [Unknown]
  - Oxygen saturation decreased [Unknown]
  - Secretion discharge [Unknown]
  - Myxoedema [Unknown]
  - Spinal stenosis [Unknown]

NARRATIVE: CASE EVENT DATE: 20240815
